FAERS Safety Report 6669569-0 (Version None)
Quarter: 2010Q2

REPORT INFORMATION
  Report Type: 
  Country: None (occurrence: None)
  Receive Date: 20100406
  Receipt Date: 20100329
  Transmission Date: 20101027
  Serious: Yes (Hospitalization)
  Sender: FDA-Public Use
  Company Number: CHNY2010JP00454

PATIENT
  Age: 23 Year
  Sex: Female

DRUGS (1)
  1. FERROUS SULFATE (NCH) [Suspect]
     Dosage: 60 TABLETS (3000 MG)
     Route: 048

REACTIONS (10)
  - ALANINE AMINOTRANSFERASE INCREASED [None]
  - ASPARTATE AMINOTRANSFERASE INCREASED [None]
  - COAGULOPATHY [None]
  - DIARRHOEA [None]
  - DRUG TOXICITY [None]
  - INTERNATIONAL NORMALISED RATIO INCREASED [None]
  - LIVER DISORDER [None]
  - METAL POISONING [None]
  - OVERDOSE [None]
  - VOMITING [None]
